FAERS Safety Report 15617098 (Version 1)
Quarter: 2018Q4

REPORT INFORMATION
  Report Type: Spontaneous
  Country: US (occurrence: US)
  Receive Date: 20181112
  Receipt Date: 20181112
  Transmission Date: 20190205
  Serious: Yes (Hospitalization)
  Sender: FDA-Public Use
  Company Number: None

PATIENT
  Sex: Male

DRUGS (8)
  1. BACTRIM, CARB/LEVO, CENTRUM [Concomitant]
  2. PROCARDIA, REGLAN, SYNTROID [Concomitant]
  3. OMEPRAZOLE, PREDNISONE [Concomitant]
  4. MYCOPHENOLIC [Suspect]
     Active Substance: MYCOPHENOLIC ACID
     Indication: RENAL TRANSPLANT
     Route: 048
     Dates: start: 20171220
  5. CYCLOSPORINE. [Suspect]
     Active Substance: CYCLOSPORINE
     Indication: RENAL TRANSPLANT
     Route: 048
     Dates: start: 20170819
  6. FISH OIL, KEPPRA, LEVAQUIN [Concomitant]
  7. VITAMIN D, ZOFRAN [Concomitant]
  8. CINNAMON, CYMBALTA, DEPAKOTE [Concomitant]

REACTIONS (1)
  - Hernia repair [None]
